FAERS Safety Report 5156263-0 (Version None)
Quarter: 2006Q4

REPORT INFORMATION
  Report Type: 
  Country: None (occurrence: None)
  Receive Date: 20061122
  Receipt Date: 20061115
  Transmission Date: 20070319
  Serious: Yes (Hospitalization)
  Sender: FDA-Public Use
  Company Number: BE-ABBOTT-06P-013-0350730-00

PATIENT
  Sex: Female

DRUGS (5)
  1. HUMIRA [Suspect]
     Indication: RHEUMATOID ARTHRITIS
     Route: 058
     Dates: start: 20050104, end: 20050515
  2. HUMIRA [Suspect]
     Route: 058
  3. METHYLPREDNISOLONE [Concomitant]
     Indication: RHEUMATOID ARTHRITIS
  4. CALCIUM [Concomitant]
     Indication: RHEUMATOID ARTHRITIS
  5. ARCOXIA [Concomitant]
     Indication: RHEUMATOID ARTHRITIS

REACTIONS (2)
  - JOINT DISLOCATION [None]
  - OSTEITIS [None]
